FAERS Safety Report 4402901-7 (Version None)
Quarter: 2004Q3

REPORT INFORMATION
  Report Type: 
  Country: None (occurrence: None)
  Receive Date: 20040720
  Receipt Date: 20040707
  Transmission Date: 20050211
  Serious: No
  Sender: FDA-Public Use
  Company Number: 2004UW11750

PATIENT
  Age: 64 Year
  Sex: Female
  Weight: 90.7194 kg

DRUGS (15)
  1. CRESTOR [Suspect]
     Indication: BLOOD CHOLESTEROL INCREASED
     Dosage: 10 MG QD PO
     Route: 048
     Dates: start: 20040511, end: 20040607
  2. LEXAPRO [Concomitant]
  3. NIASPAN [Concomitant]
  4. HYDROXYZINE [Concomitant]
  5. RISPERDAL [Concomitant]
  6. LORAZEPAM [Concomitant]
  7. ACTONEL [Concomitant]
  8. VITAMIN E [Concomitant]
  9. VITAMIN B6 [Concomitant]
  10. CALCIUM [Concomitant]
  11. M.V.I. [Concomitant]
  12. DICYCLOMINE [Concomitant]
  13. VIOXX [Concomitant]
  14. LIPITOR [Concomitant]
  15. ZOCOR [Concomitant]

REACTIONS (2)
  - MUSCLE CRAMP [None]
  - MUSCLE SPASMS [None]
